FAERS Safety Report 5493085-5 (Version None)
Quarter: 2007Q4

REPORT INFORMATION
  Report Type: 
  Country: None (occurrence: None)
  Receive Date: 20071023
  Receipt Date: 20071012
  Transmission Date: 20080405
  Serious: Yes (Other)
  Sender: FDA-Public Use
  Company Number: US-JNJFOC-20071003747

PATIENT
  Sex: Male
  Weight: 76.66 kg

DRUGS (1)
  1. DURAGESIC-100 [Suspect]
     Indication: PAIN IN EXTREMITY
     Dosage: 2 X 75UG/HR PATCHES APPLIED TOGETHER
     Route: 062

REACTIONS (7)
  - ACTIVITIES OF DAILY LIVING IMPAIRED [None]
  - CEREBROVASCULAR ACCIDENT [None]
  - HYPERHIDROSIS [None]
  - INSOMNIA [None]
  - MULTIPLE SCLEROSIS [None]
  - MUSCLE SPASMS [None]
  - WEIGHT DECREASED [None]
